FAERS Safety Report 8355414-4 (Version None)
Quarter: 2012Q2

REPORT INFORMATION
  Report Type: 
  Country: None (occurrence: None)
  Receive Date: 20120511
  Receipt Date: 20120502
  Transmission Date: 20120825
  Serious: Yes (Hospitalization)
  Sender: FDA-Public Use
  Company Number: US-GILEAD-2012-0052100

PATIENT
  Sex: Female

DRUGS (78)
  1. AZTREONAM [Suspect]
     Indication: BRONCHIECTASIS
     Dosage: 75 MG, TID
     Route: 055
     Dates: start: 20120209, end: 20120305
  2. DEXLANSOPRAZOLE [Concomitant]
     Dosage: UNK
     Dates: start: 20120111
  3. IPRATROPIUM W/LEVOSALBUTAMOL [Concomitant]
     Dosage: UNK
     Dates: start: 20120111
  4. SIMVASTATIN [Concomitant]
     Dosage: UNK
     Dates: start: 20120111
  5. JANUVIA [Concomitant]
     Dosage: UNK
     Dates: start: 20111223
  6. CALCIUM [Concomitant]
     Dosage: UNK
     Dates: start: 20120306
  7. POTASSIUM CHLORIDE [Concomitant]
     Dosage: UNK
     Dates: start: 20111223
  8. POTASSIUM CHLORIDE [Concomitant]
     Dosage: UNK
     Dates: start: 20120111
  9. LOSARTAN POTASSIUM AND HYDROCHLOROTHIAZIDE [Concomitant]
     Dosage: UNK
     Dates: start: 20120306
  10. MUCINEX [Concomitant]
     Dosage: UNK
     Dates: start: 20120111
  11. CARTIA                             /00002701/ [Concomitant]
     Dosage: UNK
     Dates: start: 20120227
  12. VESICARE [Concomitant]
     Dosage: UNK
     Dates: start: 20120306
  13. VESICARE [Concomitant]
     Dosage: UNK
     Dates: start: 20120209
  14. IPRATROPIUM W/LEVOSALBUTAMOL [Concomitant]
     Dosage: UNK
     Dates: start: 20120306
  15. JANUVIA [Concomitant]
     Dosage: UNK
     Dates: start: 20120111
  16. JANUVIA [Concomitant]
     Dosage: UNK
     Dates: start: 20120227
  17. CALCIUM [Concomitant]
     Dosage: UNK
     Dates: start: 20120111
  18. LOSARTAN POTASSIUM AND HYDROCHLOROTHIAZIDE [Concomitant]
     Dosage: UNK
     Dates: start: 20120209
  19. CARTIA                             /00002701/ [Concomitant]
     Dosage: UNK
     Dates: start: 20120209
  20. VESICARE [Concomitant]
     Dosage: UNK
     Dates: start: 20120111
  21. PRADAXA [Concomitant]
     Dosage: UNK
     Dates: start: 20120306
  22. PULMICORT [Concomitant]
     Dosage: UNK
     Dates: start: 20120306
  23. DEXLANSOPRAZOLE [Concomitant]
     Dosage: UNK
  24. SIMVASTATIN [Concomitant]
     Dosage: UNK
     Dates: start: 20111223
  25. CALCIUM [Concomitant]
     Dosage: UNK
     Dates: start: 20111223
  26. LOSARTAN POTASSIUM AND HYDROCHLOROTHIAZIDE [Concomitant]
     Dosage: UNK
     Dates: start: 20111223
  27. ZOLPIDEM [Concomitant]
     Dosage: UNK
     Dates: start: 20120209
  28. ZOLPIDEM [Concomitant]
     Dosage: UNK
     Dates: start: 20120227
  29. MUCINEX [Concomitant]
     Dosage: UNK
     Dates: start: 20111223
  30. CARTIA                             /00002701/ [Concomitant]
     Dosage: UNK
     Dates: start: 20120111
  31. PRADAXA [Concomitant]
     Dosage: UNK
     Dates: start: 20111223
  32. PULMICORT [Concomitant]
     Dosage: UNK
     Dates: start: 20120227
  33. ASPIRIN [Concomitant]
     Dosage: UNK
     Dates: start: 20120227
  34. FLONASE [Concomitant]
     Dosage: UNK
     Dates: start: 20120227
  35. IPRATROPIUM W/LEVOSALBUTAMOL [Concomitant]
     Dosage: UNK
     Dates: start: 19980311
  36. ZOLPIDEM [Concomitant]
     Dosage: UNK
     Dates: start: 20120111
  37. FLECAINIDE ACETATE [Concomitant]
     Dosage: UNK
     Dates: start: 20120306
  38. FLECAINIDE ACETATE [Concomitant]
     Dosage: UNK
     Dates: start: 20111223
  39. LEVAQUIN [Concomitant]
     Dosage: UNK
     Dates: start: 20120306, end: 20120308
  40. LEVAQUIN [Concomitant]
     Dosage: UNK
     Dates: start: 20120227
  41. DEXLANSOPRAZOLE [Concomitant]
     Dosage: UNK
     Dates: start: 20120209
  42. ASPIRIN [Concomitant]
     Indication: CHEST PAIN
     Dosage: UNK
     Dates: start: 20120306
  43. ASPIRIN [Concomitant]
     Dosage: UNK
     Dates: start: 20120209
  44. FLONASE [Concomitant]
     Dosage: UNK
     Dates: start: 20120306
  45. JANUVIA [Concomitant]
     Dosage: UNK
     Dates: start: 20120306
  46. CALCIUM [Concomitant]
     Dosage: UNK
     Dates: start: 20120227
  47. CARTIA                             /00002701/ [Concomitant]
     Dosage: UNK
     Dates: start: 20111223
  48. FLECAINIDE ACETATE [Concomitant]
     Dosage: UNK
     Dates: start: 20120111
  49. FLECAINIDE ACETATE [Concomitant]
     Dosage: UNK
     Dates: start: 20120209
  50. FLECAINIDE ACETATE [Concomitant]
     Dosage: UNK
     Dates: start: 20120227
  51. VESICARE [Concomitant]
     Dosage: UNK
     Dates: start: 20120227
  52. PRADAXA [Concomitant]
     Dosage: UNK
     Dates: start: 20120209
  53. DEXLANSOPRAZOLE [Concomitant]
     Dosage: UNK
     Dates: start: 20120306
  54. IPRATROPIUM W/LEVOSALBUTAMOL [Concomitant]
     Dosage: UNK
     Dates: start: 20120227
  55. SIMVASTATIN [Concomitant]
     Dosage: UNK
     Dates: start: 20120306
  56. POTASSIUM CHLORIDE [Concomitant]
     Dosage: UNK
     Dates: start: 20120227
  57. LOSARTAN POTASSIUM AND HYDROCHLOROTHIAZIDE [Concomitant]
     Dosage: UNK
     Dates: start: 20120227
  58. MUCINEX [Concomitant]
     Dosage: UNK
     Dates: start: 20120306
  59. CARTIA                             /00002701/ [Concomitant]
     Dosage: UNK
     Dates: start: 20120306
  60. PRADAXA [Concomitant]
     Dosage: UNK
     Dates: start: 20120111
  61. PRADAXA [Concomitant]
     Dosage: UNK
     Dates: start: 20120227
  62. PULMICORT [Concomitant]
     Dosage: UNK
     Dates: start: 20111223
  63. DEXLANSOPRAZOLE [Concomitant]
     Dosage: UNK
     Dates: start: 20120227
  64. SIMVASTATIN [Concomitant]
     Dosage: UNK
     Dates: start: 20120209
  65. POTASSIUM CHLORIDE [Concomitant]
     Dosage: UNK
     Dates: start: 20120306
  66. LOSARTAN POTASSIUM AND HYDROCHLOROTHIAZIDE [Concomitant]
     Dosage: UNK
     Dates: start: 20120111
  67. MUCINEX [Concomitant]
     Dosage: UNK
     Dates: start: 20120227
  68. PULMICORT [Concomitant]
     Dosage: UNK
     Dates: start: 20120111
  69. ASPIRIN [Concomitant]
     Dosage: UNK
     Dates: start: 20120111
  70. IPRATROPIUM W/LEVOSALBUTAMOL [Concomitant]
     Dosage: UNK
     Dates: start: 20120209
  71. IPRATROPIUM W/LEVOSALBUTAMOL [Concomitant]
     Dosage: UNK
     Dates: start: 20111223
  72. JANUVIA [Concomitant]
     Dosage: UNK
     Dates: start: 20120209
  73. CALCIUM [Concomitant]
     Dosage: UNK
     Dates: start: 20120209
  74. POTASSIUM CHLORIDE [Concomitant]
     Dosage: UNK
     Dates: start: 20120209
  75. ZOLPIDEM [Concomitant]
     Dosage: UNK
     Dates: start: 20120306
  76. ZOLPIDEM [Concomitant]
     Dosage: UNK
     Dates: start: 20111223
  77. VESICARE [Concomitant]
     Dosage: UNK
     Dates: start: 20111223
  78. PULMICORT [Concomitant]
     Dosage: UNK
     Dates: start: 20120209

REACTIONS (1)
  - BRONCHIECTASIS [None]
